FAERS Safety Report 9289325 (Version 1)
Quarter: 2013Q2

REPORT INFORMATION
  Report Type: Spontaneous
  Country: US (occurrence: US)
  Receive Date: 20130514
  Receipt Date: 20130514
  Transmission Date: 20140414
  Serious: Yes (Death)
  Sender: FDA-Public Use
  Company Number: US-TEVA-403983USA

PATIENT
  Sex: Female
  Weight: 54.03 kg

DRUGS (2)
  1. FENTORA [Suspect]
     Indication: CANCER PAIN
  2. CLONIDINE PATCH [Concomitant]
     Indication: HYPERTENSION
     Route: 061

REACTIONS (1)
  - Colon cancer stage IV [Fatal]
